FAERS Safety Report 5831712-0 (Version None)
Quarter: 2008Q3

REPORT INFORMATION
  Report Type: 
  Country: None (occurrence: None)
  Receive Date: 20080803
  Receipt Date: 20080722
  Transmission Date: 20090109
  Serious: Yes (Hospitalization, Other)
  Sender: FDA-Public Use
  Company Number: PHHO2007IT12470

PATIENT
  Sex: Female
  Weight: 76 kg

DRUGS (10)
  1. TASIGNA [Suspect]
     Indication: CHRONIC MYELOID LEUKAEMIA
     Dosage: 400 MG, BID
     Route: 048
     Dates: start: 20070416, end: 20070725
  2. LORAZEPAM [Concomitant]
     Indication: DEPRESSION
     Dates: end: 20070725
  3. ASPIRIN [Concomitant]
     Indication: THROMBOCYTHAEMIA
     Dates: end: 20070725
  4. PROTIADENE [Concomitant]
     Indication: DEPRESSION
     Dates: end: 20070725
  5. LOSARTAN POTASSIUM [Concomitant]
     Indication: HYPERTENSION
  6. PAROXETINE HCL [Concomitant]
     Indication: DEPRESSION
  7. CLONAZEPAM [Concomitant]
  8. DOSULEPIN HYDROCHLORIDE [Concomitant]
     Indication: DEPRESSION
     Dosage: 75 MG, UNK
     Route: 048
  9. CLODRONIC ACID [Concomitant]
  10. EPOGEN [Concomitant]

REACTIONS (13)
  - COMA [None]
  - EJECTION FRACTION DECREASED [None]
  - ELECTROCARDIOGRAM ST SEGMENT DEPRESSION [None]
  - HAEMOGLOBIN DECREASED [None]
  - HEADACHE [None]
  - HYPOVOLAEMIC SHOCK [None]
  - LEUKOCYTOSIS [None]
  - MALAISE [None]
  - MYOGLOBIN BLOOD INCREASED [None]
  - PLATELET COUNT DECREASED [None]
  - PYREXIA [None]
  - TROPONIN INCREASED [None]
  - VENTRICULAR HYPOKINESIA [None]
